FAERS Safety Report 17667935 (Version 3)
Quarter: 2025Q3

REPORT INFORMATION
  Report Type: Spontaneous
  Country: US (occurrence: US)
  Receive Date: 20200415
  Receipt Date: 20250705
  Transmission Date: 20251020
  Serious: Yes (Life-Threatening, Hospitalization, Other)
  Sender: AUROBINDO
  Company Number: US-MLMSERVICE-20200401-2236200-1

PATIENT
  Age: 2 Month
  Sex: Male
  Weight: 12 kg

DRUGS (5)
  1. BUPIVACAINE HYDROCHLORIDE [Suspect]
     Active Substance: BUPIVACAINE HYDROCHLORIDE
     Indication: Nerve block
     Route: 065
  2. BUPIVACAINE HYDROCHLORIDE [Suspect]
     Active Substance: BUPIVACAINE HYDROCHLORIDE
     Route: 065
  3. LIDOCAINE [Suspect]
     Active Substance: LIDOCAINE
     Indication: Nerve block
     Route: 065
  4. LIDOCAINE [Suspect]
     Active Substance: LIDOCAINE
     Route: 065
  5. HYALURONIDASE [Concomitant]
     Active Substance: HYALURONIDASE
     Indication: Product used for unknown indication
     Route: 065

REACTIONS (8)
  - Electrocardiogram T wave amplitude increased [Recovered/Resolved]
  - Generalised tonic-clonic seizure [Recovered/Resolved]
  - Tachycardia [Recovered/Resolved]
  - Local anaesthetic systemic toxicity [Recovering/Resolving]
  - Oxygen saturation decreased [Recovering/Resolving]
  - Electrocardiogram ST segment elevation [Recovered/Resolved]
  - Agitation [Recovering/Resolving]
  - Overdose [Unknown]
